FAERS Safety Report 6358882-2 (Version None)
Quarter: 2009Q3

REPORT INFORMATION
  Report Type: 
  Country: None (occurrence: None)
  Receive Date: 20090916
  Receipt Date: 20090903
  Transmission Date: 20100115
  Serious: No
  Sender: FDA-Public Use
  Company Number: US-ABBOTT-09P-163-0595922-00

PATIENT
  Sex: Female
  Weight: 81.266 kg

DRUGS (8)
  1. TRILIPIX [Suspect]
     Indication: DYSLIPIDAEMIA
     Route: 048
     Dates: start: 20090604, end: 20090609
  2. SYNTHROID [Concomitant]
     Indication: HYPOTHYROIDISM
     Route: 048
  3. FOSAMAX [Concomitant]
     Indication: OSTEOPOROSIS
  4. LASIX [Concomitant]
     Indication: DIURETIC THERAPY
     Route: 048
  5. COREG [Concomitant]
     Indication: HYPERTENSION
     Dosage: 1/2 TAB TWICE A DAY
     Route: 048
  6. METFORMIN HCL [Concomitant]
     Indication: DIABETES MELLITUS
     Route: 048
  7. FISH OIL [Concomitant]
     Indication: MEDICAL DIET
     Dosage: OVER THE COUNTER
     Route: 048
  8. CELEXA [Concomitant]
     Indication: DEPRESSION
     Route: 048

REACTIONS (4)
  - BONE PAIN [None]
  - JOINT SWELLING [None]
  - MYALGIA [None]
  - NAUSEA [None]
